FAERS Safety Report 4882866-4 (Version None)
Quarter: 2005Q4

REPORT INFORMATION
  Report Type: 
  Country: None (occurrence: None)
  Receive Date: 20051201
  Receipt Date: 20050926
  Transmission Date: 20060501
  Serious: No
  Sender: FDA-Public Use
  Company Number: 2005PV002510

PATIENT
  Age: 64 Year
  Sex: Male
  Weight: 137.4399 kg

DRUGS (4)
  1. BYETTA [Suspect]
     Indication: DIABETES MELLITUS NON-INSULIN-DEPENDENT
     Dosage: 5 MCG; BID; SC
     Route: 058
     Dates: start: 20050829
  2. HUMALOG [Concomitant]
  3. HUMALOG MIX 75/25 [Concomitant]
  4. HUMULIN N [Concomitant]

REACTIONS (1)
  - CONSTIPATION [None]
